FAERS Safety Report 18097956 (Version 1)
Quarter: 2020Q3

REPORT INFORMATION
  Report Type: Spontaneous
  Country: CA (occurrence: CA)
  Receive Date: 20200731
  Receipt Date: 20200731
  Transmission Date: 20201103
  Serious: Yes (Life-Threatening)
  Sender: FDA-Public Use
  Company Number: CA-HLS-202000928

PATIENT
  Age: 56 Year
  Sex: Male

DRUGS (4)
  1. FLUPENTIXOL [Concomitant]
     Active Substance: FLUPENTIXOL
     Dosage: NOT SPECIFIED
     Route: 065
  2. CLOZAPINE. [Suspect]
     Active Substance: CLOZAPINE
     Indication: SCHIZOPHRENIA
     Dosage: 50.0 MILLIGRAM
     Route: 048
  3. VALPROIC ACID. [Concomitant]
     Active Substance: VALPROIC ACID
     Dosage: NOT SPECIFIED
     Route: 065
  4. BENZTROPINE. [Concomitant]
     Active Substance: BENZTROPINE
     Route: 065

REACTIONS (11)
  - Atrial fibrillation [Recovered/Resolved]
  - Dyspnoea [Recovered/Resolved]
  - C-reactive protein increased [Recovered/Resolved]
  - Ejection fraction decreased [Recovered/Resolved]
  - Cardiomyopathy [Recovered/Resolved]
  - Pneumonia [Recovered/Resolved]
  - Hypotension [Recovered/Resolved]
  - Ventricular hypokinesia [Recovered/Resolved]
  - White blood cell count increased [Recovered/Resolved]
  - Brain natriuretic peptide increased [Recovered/Resolved]
  - Troponin increased [Recovered/Resolved]
